FAERS Safety Report 8855862 (Version 1)
Quarter: 2012Q4

REPORT INFORMATION
  Report Type: Spontaneous
  Country: US (occurrence: None)
  Receive Date: 20121022
  Receipt Date: 20121022
  Transmission Date: 20130627
  Serious: Yes (Hospitalization, Other)
  Sender: FDA-Public Use
  Company Number: None

PATIENT
  Age: 8 Year
  Sex: Male
  Weight: 33.57 kg

DRUGS (2)
  1. SINGULAIR [Suspect]
     Indication: ASTHMA
     Dosage: 5m before bed po
     Route: 048
     Dates: start: 20110701, end: 20121016
  2. ADVAIR [Suspect]
     Indication: ASTHMA
     Dosage: 2 puffs in am/pm inhal
     Route: 055
     Dates: start: 20110701, end: 20121016

REACTIONS (5)
  - Complex partial seizures [None]
  - Sleep terror [None]
  - Fear [None]
  - Choking [None]
  - Morbid thoughts [None]
